FAERS Safety Report 8573815-6 (Version None)
Quarter: 2012Q3

REPORT INFORMATION
  Report Type: 
  Country: None (occurrence: None)
  Receive Date: 20120806
  Receipt Date: 20110728
  Transmission Date: 20120928
  Serious: No
  Sender: FDA-Public Use
  Company Number: US-GLAXOSMITHKLINE-A0938805A

PATIENT
  Age: 5 Year
  Sex: Female
  Weight: 15.7 kg

DRUGS (9)
  1. VERAMYST [Concomitant]
  2. UNSPECIFIED [Concomitant]
  3. PATANASE [Concomitant]
  4. FLUTICASONE PROPIONATE [Suspect]
     Indication: PRODUCT USED FOR UNKNOWN INDICATION
     Route: 065
     Dates: start: 20110421, end: 20110531
  5. XOPENEX [Concomitant]
     Dates: start: 20110421
  6. DITROPAN [Concomitant]
  7. SENNA-MINT WAF [Concomitant]
  8. HYDROXYZINE [Concomitant]
  9. CETIRIZINE [Concomitant]

REACTIONS (3)
  - ABDOMINAL DISTENSION [None]
  - GASTROINTESTINAL DISORDER [None]
  - PYREXIA [None]
